FAERS Safety Report 22246100 (Version 2)
Quarter: 2023Q2

REPORT INFORMATION
  Report Type: Spontaneous
  Country: ES (occurrence: ES)
  Receive Date: 20230424
  Receipt Date: 20230608
  Transmission Date: 20230722
  Serious: Yes (Other)
  Sender: FDA-Public Use
  Company Number: ES-ASTELLAS-2023US011312

PATIENT
  Age: 72 Year
  Sex: Male

DRUGS (10)
  1. AZACITIDINE [Suspect]
     Active Substance: AZACITIDINE
     Indication: Acute myeloid leukaemia recurrent
     Dosage: UNK UNK, UNKNOWN FREQ. (4TH LINE, X 7D)
     Route: 065
  2. AZACITIDINE [Suspect]
     Active Substance: AZACITIDINE
     Indication: FLT3 gene mutation
     Dosage: UNK UNK, UNKNOWN FREQ.
     Route: 065
  3. AZACITIDINE [Suspect]
     Active Substance: AZACITIDINE
     Dosage: UNK, QD, UNK, ONCE DAILY (1ST CYCLE X 7 DAYS)
     Route: 058
     Dates: start: 20230327
  4. AZACITIDINE [Suspect]
     Active Substance: AZACITIDINE
     Dosage: UNK,UNKNOWN FREQ. (SECOND CYCLE X 5 DAYS)
     Route: 065
     Dates: start: 20230425
  5. GILTERITINIB [Suspect]
     Active Substance: GILTERITINIB
     Indication: Acute myeloid leukaemia recurrent
     Dosage: UNK UNK, UNKNOWN FREQ.
     Route: 065
     Dates: start: 20230327
  6. GILTERITINIB [Suspect]
     Active Substance: GILTERITINIB
     Indication: FLT3 gene mutation
     Dosage: 80 MILLIGRAM, QD, (DOSE REDUCED, 3 DAYS)
     Route: 065
     Dates: start: 20230403
  7. VENETOCLAX [Suspect]
     Active Substance: VENETOCLAX
     Indication: Acute myeloid leukaemia recurrent
     Dosage: 400MILLIGRAM, QD (4TH LINE, 1ST CYCLE, 14 DAYS)
     Route: 065
     Dates: start: 20230327
  8. VENETOCLAX [Suspect]
     Active Substance: VENETOCLAX
     Indication: FLT3 gene mutation
     Dosage: 400 MILLIGRAM, QD, 400 MG, ONCE DAILY (SECOND CYC
     Route: 065
     Dates: start: 20230425
  9. MIDOSTAURIN [Concomitant]
     Active Substance: MIDOSTAURIN
     Indication: Acute myeloid leukaemia
     Dosage: UNK UNK, UNKNOWN FREQ.
     Route: 065
  10. MIDOSTAURIN [Concomitant]
     Active Substance: MIDOSTAURIN
     Indication: FLT3 gene mutation

REACTIONS (6)
  - Thrombocytopenia [Unknown]
  - Cytopenia [Unknown]
  - Monocytosis [Unknown]
  - Leukocytosis [Unknown]
  - Product use issue [Recovered/Resolved]
  - Off label use [Recovered/Resolved]

NARRATIVE: CASE EVENT DATE: 20230327
